FAERS Safety Report 7918481-5 (Version None)
Quarter: 2011Q4

REPORT INFORMATION
  Report Type: 
  Country: None (occurrence: None)
  Receive Date: 20111116
  Receipt Date: 20111108
  Transmission Date: 20120403
  Serious: Yes (Other)
  Sender: FDA-Public Use
  Company Number: GB-ELI_LILLY_AND_COMPANY-GB201111002734

PATIENT
  Age: 78 Year
  Sex: Female

DRUGS (1)
  1. HUMALOG MIX 75/25 [Suspect]
     Dosage: UNK

REACTIONS (3)
  - DRUG DISPENSING ERROR [None]
  - CEREBROVASCULAR ACCIDENT [None]
  - EXPIRED DRUG ADMINISTERED [None]
